FAERS Safety Report 7560610-X (Version None)
Quarter: 2011Q2

REPORT INFORMATION
  Report Type: 
  Country: None (occurrence: None)
  Receive Date: 20110621
  Receipt Date: 20110204
  Transmission Date: 20111010
  Serious: No
  Sender: FDA-Public Use
  Company Number: US-ASTRAZENECA-2011SE06465

PATIENT
  Sex: Female

DRUGS (3)
  1. PROZAC [Concomitant]
  2. SINGULAIR [Concomitant]
  3. ENTOCORT EC [Suspect]
     Indication: CROHN'S DISEASE
     Dosage: DAILY
     Route: 048
     Dates: start: 20100101

REACTIONS (2)
  - DRY MOUTH [None]
  - ALOPECIA [None]
